FAERS Safety Report 16413374 (Version 1)
Quarter: 2019Q2

REPORT INFORMATION
  Report Type: Spontaneous
  Country: BR (occurrence: BR)
  Receive Date: 20190611
  Receipt Date: 20190611
  Transmission Date: 20190711
  Serious: Yes (Other)
  Sender: FDA-Public Use
  Company Number: BR-ABBVIE-19P-020-2814214-00

PATIENT
  Sex: Male

DRUGS (2)
  1. DEPAKOTE [Suspect]
     Active Substance: DIVALPROEX SODIUM
     Indication: SEIZURE PROPHYLAXIS
     Dosage: PATIENT ALSO TAKES DEPAKOTE BECAUSE IT^S THE SAME AS DEPAKENE. DID NOT PROVIDE DETAILS.
     Route: 065
  2. DEPAKENE [Suspect]
     Active Substance: VALPROIC ACID
     Indication: SEIZURE PROPHYLAXIS
     Dosage: DEPAKENE 500 MG, DAILY DOSE 2000  MG, FREQUENCY: MORNING/NIGHT;
     Route: 048

REACTIONS (6)
  - Therapeutic product effect decreased [Unknown]
  - Throat tightness [Unknown]
  - Partial seizures [Unknown]
  - Product dose omission [Unknown]
  - Vomiting [Recovering/Resolving]
  - Dizziness [Recovered/Resolved]
